FAERS Safety Report 10043184 (Version 2)
Quarter: 2014Q2

REPORT INFORMATION
  Report Type: Spontaneous
  Country: JP (occurrence: JP)
  Receive Date: 20140328
  Receipt Date: 20140527
  Transmission Date: 20141212
  Serious: Yes (Other)
  Sender: FDA-Public Use
  Company Number: JP-BRISTOL-MYERS SQUIBB COMPANY-20558615

PATIENT
  Age: 60 Year
  Sex: Female

DRUGS (1)
  1. ELIQUIS [Suspect]
     Dosage: DRUG INTERRUPTED ON MAY 2014
     Dates: start: 201405, end: 201405

REACTIONS (2)
  - Gastric ulcer haemorrhage [Not Recovered/Not Resolved]
  - Gastric ulcer [Not Recovered/Not Resolved]
